FAERS Safety Report 18616448 (Version 1)
Quarter: 2020Q4

REPORT INFORMATION
  Report Type: Spontaneous
  Country: US (occurrence: US)
  Receive Date: 20201215
  Receipt Date: 20201215
  Transmission Date: 20210114
  Serious: No
  Sender: FDA-Public Use
  Company Number: US-GLOBAL BLOOD THERAPEUTICS INC-US-GBT-20-03363

PATIENT
  Age: 30 Year
  Sex: Female

DRUGS (2)
  1. OXBRYTA [Suspect]
     Active Substance: VOXELOTOR
     Indication: PRODUCT USED FOR UNKNOWN INDICATION
     Dates: start: 202007, end: 202009
  2. OXBRYTA [Suspect]
     Active Substance: VOXELOTOR
     Dates: start: 202009

REACTIONS (7)
  - Diarrhoea [Recovering/Resolving]
  - Feeling abnormal [Unknown]
  - Alanine aminotransferase increased [Unknown]
  - Nausea [Recovering/Resolving]
  - Aspartate aminotransferase increased [Unknown]
  - Headache [Unknown]
  - Vomiting [Unknown]

NARRATIVE: CASE EVENT DATE: 2020
